FAERS Safety Report 10103217 (Version 1)
Quarter: 2014Q2

REPORT INFORMATION
  Report Type: Spontaneous
  Country: US (occurrence: US)
  Receive Date: 20140424
  Receipt Date: 20140424
  Transmission Date: 20141212
  Serious: No
  Sender: FDA-Public Use
  Company Number: US-BRISTOL-MYERS SQUIBB COMPANY-20191375

PATIENT
  Age: 68 Year
  Sex: Male

DRUGS (4)
  1. ELIQUIS [Suspect]
     Route: 048
  2. BENAZEPRIL HCL [Concomitant]
  3. AMLODIPINE [Concomitant]
  4. BYSTOLIC [Concomitant]

REACTIONS (3)
  - Abdominal pain upper [Unknown]
  - Abdominal distension [Unknown]
  - Flatulence [Unknown]
